FAERS Safety Report 25427726 (Version 2)
Quarter: 2025Q2

REPORT INFORMATION
  Report Type: Spontaneous
  Country: CN (occurrence: CN)
  Receive Date: 20250612
  Receipt Date: 20250625
  Transmission Date: 20250717
  Serious: Yes (Life-Threatening)
  Sender: ACCORD
  Company Number: CN-HENLIUS-25CN020506

PATIENT
  Age: 38 Year
  Sex: Female
  Weight: 60 kg

DRUGS (5)
  1. TRASTUZUMAB [Suspect]
     Active Substance: TRASTUZUMAB
     Indication: Breast cancer
     Dosage: Q3W, STRENGTH: 150 MILLIGRAM, INTRAVENOUS DRIP
     Route: 042
  2. PERTUZUMAB [Concomitant]
     Active Substance: PERTUZUMAB
     Indication: Breast cancer
     Route: 042
     Dates: start: 20250514, end: 20250514
  3. TRASTUZUMAB [Suspect]
     Active Substance: TRASTUZUMAB
     Indication: Breast cancer
     Dosage: 300 MILLIGRAM, Q3W, STRENGTH: 150 MILLIGRAM, INTRAVENOUS DRIP
     Route: 042
     Dates: start: 20250514, end: 20250514
  4. TRASTUZUMAB [Suspect]
     Active Substance: TRASTUZUMAB
     Indication: Breast cancer
     Dosage: Q3W, STRENGTH: 60 MILLIGRAM, INTRAVENOUS DRIP
     Route: 042
  5. TRASTUZUMAB [Suspect]
     Active Substance: TRASTUZUMAB
     Indication: Breast cancer
     Dosage: 60 MILLIGRAM, Q3W, STRENGTH: 60 MILLIGRAM, INTRAVENOUS DRIP
     Route: 042
     Dates: start: 20250514, end: 20250514

REACTIONS (4)
  - Rash erythematous [Recovered/Resolved]
  - Palpitations [Recovered/Resolved]
  - Dyspnoea [Recovered/Resolved]
  - Infusion related reaction [Recovered/Resolved]

NARRATIVE: CASE EVENT DATE: 20250514
